APPROVED DRUG PRODUCT: MOBAN
Active Ingredient: MOLINDONE HYDROCHLORIDE
Strength: 20MG/ML
Dosage Form/Route: CONCENTRATE;ORAL
Application: N017938 | Product #001
Applicant: ENDO PHARMACEUTICALS INC
Approved: Approved Prior to Jan 1, 1982 | RLD: No | RS: No | Type: DISCN